FAERS Safety Report 9521810 (Version 1)
Quarter: 2013Q1

REPORT INFORMATION
  Report Type: Spontaneous
  Country: US (occurrence: None)
  Receive Date: 20130305
  Receipt Date: 20130305
  Transmission Date: 20140127
  Serious: Yes (Other)
  Sender: FDA-Public Use
  Company Number: 163-21880-12033123

PATIENT
  Age: 66 Year
  Sex: Male
  Weight: 55.34 kg

DRUGS (8)
  1. REVLIMID (LENALIDOMIDE) (25 MILLIGRAM, CAPSULES) [Suspect]
     Indication: PLASMA CELL MYELOMA
     Dosage: 25 MG, DAILY X 21 DAYS, PO
     Route: 048
     Dates: start: 20120223
  2. GABAPENTIN (GABAPENTIN) [Concomitant]
  3. OMEPRAZOLE (OMEPRAZOLE) [Concomitant]
  4. OXYCODONE/APAP (OXYCODONE/APAP) [Concomitant]
  5. DEXAMETHASONE (DEXAMETHASONE) [Concomitant]
  6. CETIRIZINE (CETIRIZINE) [Concomitant]
  7. ACYCLOVIR (ACICLOVIR) (ACICLOVIR) [Concomitant]
  8. FLUTICASONE (FLUTICASONE) [Concomitant]

REACTIONS (1)
  - Renal impairment [None]
